FAERS Safety Report 23634108 (Version 1)
Quarter: 2024Q1

REPORT INFORMATION
  Report Type: Report from Study
  Country: US (occurrence: US)
  Receive Date: 20240314
  Receipt Date: 20240314
  Transmission Date: 20240410
  Serious: Yes (Death, Hospitalization)
  Sender: FDA-Public Use
  Company Number: US-TAIHOP-2023-009062

PATIENT
  Age: 67 Year
  Sex: Male

DRUGS (1)
  1. LONSURF [Suspect]
     Active Substance: TIPIRACIL HYDROCHLORIDE\TRIFLURIDINE
     Indication: Rectal cancer
     Dosage: CYCLE UNKNOWN?60MG IN THE MORNING AND 45MG IN THE EVENING?DAILY DOSE: 105 MILLIGRAM(S)
     Route: 048
     Dates: start: 20231003

REACTIONS (2)
  - Death [Fatal]
  - Infection [Unknown]
